FAERS Safety Report 8229082-6 (Version None)
Quarter: 2012Q1

REPORT INFORMATION
  Report Type: 
  Country: None (occurrence: None)
  Receive Date: 20120322
  Receipt Date: 20120307
  Transmission Date: 20120608
  Serious: Yes (Hospitalization)
  Sender: FDA-Public Use
  Company Number: US-WATSON-2012-04958

PATIENT
  Age: 85 Year
  Sex: Male

DRUGS (2)
  1. VERAPAMIL HCL [Suspect]
     Indication: HYPERTENSION
     Dosage: 240 MG, DAILY
     Route: 065
  2. ASPIRIN [Suspect]
     Indication: CORONARY ARTERY DISEASE

REACTIONS (3)
  - ECCHYMOSIS [None]
  - PROTHROMBIN LEVEL INCREASED [None]
  - DRUG INTERACTION [None]
